FAERS Safety Report 12632893 (Version 2)
Quarter: 2016Q3

REPORT INFORMATION
  Report Type: Spontaneous
  Country: US (occurrence: US)
  Receive Date: 20160808
  Receipt Date: 20160808
  Transmission Date: 20161109
  Serious: No
  Sender: FDA-Public Use
  Company Number: US-BEH-2015057468

PATIENT
  Sex: Female
  Weight: 85 kg

DRUGS (18)
  1. FLONASE [Concomitant]
     Active Substance: FLUTICASONE PROPIONATE
  2. COLACE [Concomitant]
     Active Substance: DOCUSATE SODIUM
  3. ASCORBIC ACID. [Concomitant]
     Active Substance: ASCORBIC ACID
  4. IRON 325 [Concomitant]
  5. CYANOCOBALAMIN. [Concomitant]
     Active Substance: CYANOCOBALAMIN
  6. IBUPROFEN. [Concomitant]
     Active Substance: IBUPROFEN
  7. HIZENTRA [Suspect]
     Active Substance: HUMAN IMMUNOGLOBULIN G
     Indication: IMMUNODEFICIENCY COMMON VARIABLE
     Route: 058
  8. FERROUS SULFATE. [Concomitant]
     Active Substance: FERROUS SULFATE
  9. CALCIUM [Concomitant]
     Active Substance: CALCIUM
  10. NORTRIPTYLINE [Concomitant]
     Active Substance: NORTRIPTYLINE
  11. EPIPEN [Concomitant]
     Active Substance: EPINEPHRINE
  12. LISINOPRIL. [Concomitant]
     Active Substance: LISINOPRIL
  13. DIPHENHYDRAMINE. [Concomitant]
     Active Substance: DIPHENHYDRAMINE
  14. ZOLOFT [Concomitant]
     Active Substance: SERTRALINE HYDROCHLORIDE
  15. DYAZIDE [Concomitant]
     Active Substance: HYDROCHLOROTHIAZIDE\TRIAMTERENE
  16. ZINC [Concomitant]
     Active Substance: ZINC\ZINC CHLORIDE
  17. MICROGESTIN FE [Concomitant]
     Active Substance: ETHINYL ESTRADIOL\FERROUS FUMARATE\NORETHINDRONE ACETATE
  18. MULTIVITAMINS, COMBINATIONS [Concomitant]

REACTIONS (1)
  - Cystitis [Unknown]
